FAERS Safety Report 5866312-X (Version None)
Quarter: 2008Q3

REPORT INFORMATION
  Report Type: 
  Country: None (occurrence: None)
  Receive Date: 20080901
  Receipt Date: 20080826
  Transmission Date: 20090109
  Serious: Yes (Life-Threatening)
  Sender: FDA-Public Use
  Company Number: PHHY2008JP07401

PATIENT
  Sex: Male

DRUGS (7)
  1. SANDOSTATIN [Suspect]
     Indication: DIARRHOEA
     Dosage: 300 UG/DAY
     Route: 058
     Dates: start: 20080420, end: 20080505
  2. PROGRAF [Concomitant]
     Indication: GRAFT VERSUS HOST DISEASE
     Dosage: 0.7 MG
     Dates: start: 20080413
  3. NEUTROGIN [Concomitant]
     Dosage: 100 UG
     Route: 042
     Dates: start: 20080318, end: 20080420
  4. METHYLPREDNISOLONE SODIUM SUCCINATE [Concomitant]
     Dosage: 80 MG/DAY
     Route: 042
     Dates: start: 20080413
  5. METHYLPREDNISOLONE SODIUM SUCCINATE [Concomitant]
     Dosage: 60 MG/DAY
     Route: 042
  6. METHYLPREDNISOLONE SODIUM SUCCINATE [Concomitant]
     Dosage: 40 MG/DAY
     Route: 042
     Dates: end: 20080512
  7. HUMULIN R [Concomitant]
     Dosage: 100 IU
     Route: 042
     Dates: start: 20080429, end: 20080514

REACTIONS (10)
  - BLOOD POTASSIUM DECREASED [None]
  - BRADYCARDIA [None]
  - CARDIAC ARREST [None]
  - ELECTROCARDIOGRAM ST SEGMENT DEPRESSION [None]
  - HAEMOGLOBIN DECREASED [None]
  - HYPERGLYCAEMIA [None]
  - LIVER FUNCTION TEST ABNORMAL [None]
  - LOSS OF CONSCIOUSNESS [None]
  - SCINTIGRAPHY [None]
  - SINUS ARRHYTHMIA [None]
